FAERS Safety Report 6333826-8 (Version None)
Quarter: 2009Q3

REPORT INFORMATION
  Report Type: 
  Country: None (occurrence: None)
  Receive Date: 20090829
  Receipt Date: 20090608
  Transmission Date: 20100115
  Serious: No
  Sender: FDA-Public Use
  Company Number: US-ABBOTT-09P-163-0578555-00

PATIENT
  Sex: Male

DRUGS (5)
  1. SIMCOR [Suspect]
     Indication: LOW DENSITY LIPOPROTEIN INCREASED
     Dosage: 500/20MG AT BEDTIME
     Dates: start: 20090501
  2. MILK THISTLE [Concomitant]
     Indication: DRUG USE FOR UNKNOWN INDICATION
  3. LIVERITE [Concomitant]
     Indication: DRUG USE FOR UNKNOWN INDICATION
  4. ALLEGRA [Concomitant]
     Indication: DRUG USE FOR UNKNOWN INDICATION
  5. IBUPROFEN [Concomitant]
     Indication: DRUG USE FOR UNKNOWN INDICATION

REACTIONS (1)
  - HOT FLUSH [None]
